FAERS Safety Report 19955183 (Version 1)
Quarter: 2021Q4

REPORT INFORMATION
  Report Type: Spontaneous
  Country: US (occurrence: US)
  Receive Date: 20211014
  Receipt Date: 20211014
  Transmission Date: 20220303
  Serious: Yes (Hospitalization)
  Sender: FDA-Public Use
  Company Number: None

PATIENT
  Age: 16 Year
  Sex: Male
  Weight: 56.4 kg

DRUGS (22)
  1. ABATACEPT [Suspect]
     Active Substance: ABATACEPT
     Indication: Prophylaxis against graft versus host disease
     Dosage: ?          OTHER FREQUENCY:8 DOSES;
     Route: 042
     Dates: start: 20210303, end: 20210803
  2. ACETAMINOPHEN [Concomitant]
     Active Substance: ACETAMINOPHEN
     Dates: start: 20210305
  3. ACYCLOVIR [Concomitant]
     Active Substance: ACYCLOVIR
     Dates: start: 20210604
  4. AMLODIPINE [Concomitant]
     Active Substance: AMLODIPINE BESYLATE
     Dates: start: 20210302
  5. AMOXICILLIN [Concomitant]
     Active Substance: AMOXICILLIN
     Dates: start: 20210521
  6. ATIVAN [Concomitant]
     Active Substance: LORAZEPAM
     Dates: start: 20210405
  7. BENADRYL [Concomitant]
     Active Substance: DIPHENHYDRAMINE HYDROCHLORIDE
     Dates: start: 20210303
  8. MULTI-VITAMIN [Concomitant]
     Active Substance: .ALPHA.-TOCOPHEROL ACETATE, DL-\ASCORBIC ACID\CYANOCOBALAMIN\FLUORIDE ION\FOLIC ACID\NIACIN\PYRIDOXI
     Dates: start: 20210305
  9. COLACE [Concomitant]
     Active Substance: DOCUSATE SODIUM
     Dates: start: 20210326
  10. CYCLOBENZAPRINE [Concomitant]
     Active Substance: CYCLOBENZAPRINE
     Dates: start: 20171206
  11. ENALAPRIL [Concomitant]
     Active Substance: ENALAPRIL
     Dates: start: 20210317
  12. FOLIC ACID [Concomitant]
     Active Substance: FOLIC ACID
     Dates: start: 20171206
  13. GABAPENTIN [Concomitant]
     Active Substance: GABAPENTIN
     Dates: start: 20210225
  14. KEPPRA [Concomitant]
     Active Substance: LEVETIRACETAM
     Dates: start: 20210225
  15. MAGNESIUM SULFATE [Concomitant]
     Active Substance: MAGNESIUM SULFATE
     Dates: start: 20210318
  16. MELATONIN [Concomitant]
     Active Substance: MELATONIN
     Dates: start: 20210227
  17. MORPHINE [Concomitant]
     Active Substance: MORPHINE
     Dates: start: 20210330
  18. MS CONTIN [Concomitant]
     Active Substance: MORPHINE SULFATE
     Dates: start: 20210409
  19. VORICONAZOLE [Concomitant]
     Active Substance: VORICONAZOLE
     Dates: start: 20210305
  20. PENICILLIN V POTASSIUM [Concomitant]
     Active Substance: PENICILLIN V POTASSIUM
     Dates: start: 20210226
  21. SERTRALINE [Concomitant]
     Active Substance: SERTRALINE HYDROCHLORIDE
     Dates: start: 20200131
  22. TACROLIMUS [Concomitant]
     Active Substance: TACROLIMUS
     Dates: start: 20210302

REACTIONS (9)
  - Dyspnoea [None]
  - Cough [None]
  - Pneumonia [None]
  - Lung consolidation [None]
  - Pyrexia [None]
  - Sepsis [None]
  - Gram stain positive [None]
  - Staphylococcus test positive [None]
  - Drug level increased [None]

NARRATIVE: CASE EVENT DATE: 20211002
